FAERS Safety Report 4281874-4 (Version None)
Quarter: 2004Q1

REPORT INFORMATION
  Report Type: 
  Country: None (occurrence: None)
  Receive Date: 20040128
  Receipt Date: 20040116
  Transmission Date: 20041129
  Serious: Yes (Disabling)
  Sender: FDA-Public Use
  Company Number: 04P-167-0247489-00

PATIENT
  Age: 23 Year
  Sex: Female

DRUGS (2)
  1. DEPAKENE [Suspect]
     Indication: PERSONALITY DISORDER
     Dosage: 1 GM, 1 IN 1 D, ORAL
     Route: 048
     Dates: start: 20031118, end: 20031205
  2. ZOPICLONE [Concomitant]

REACTIONS (2)
  - CIRCULATORY COLLAPSE [None]
  - GRAND MAL CONVULSION [None]
